FAERS Safety Report 6971646-1 (Version None)
Quarter: 2010Q3

REPORT INFORMATION
  Report Type: 
  Country: None (occurrence: None)
  Receive Date: 20100908
  Receipt Date: 20100825
  Transmission Date: 20110219
  Serious: Yes (Other)
  Sender: FDA-Public Use
  Company Number: PHHY2010IE07006

PATIENT
  Sex: Female

DRUGS (3)
  1. CLOZARIL [Suspect]
     Indication: SCHIZOPHRENIA
     Dosage: 300 MG
     Route: 048
     Dates: start: 20071026
  2. NEO-CYTAMEN [Concomitant]
     Indication: VITAMIN B12 DEFICIENCY
     Dosage: EVERY THREE  MONTHS
     Route: 030
  3. PROVERA [Concomitant]
     Indication: MENORRHAGIA
     Dosage: EVERY THREE MONTHS
     Route: 030

REACTIONS (4)
  - NEUTROPENIA [None]
  - OLIGOMENORRHOEA [None]
  - TACHYCARDIA [None]
  - WHITE BLOOD CELL COUNT DECREASED [None]
